FAERS Safety Report 26169974 (Version 1)
Quarter: 2025Q4

REPORT INFORMATION
  Report Type: Spontaneous
  Country: US (occurrence: US)
  Receive Date: 20251217
  Receipt Date: 20251217
  Transmission Date: 20260117
  Serious: No
  Sender: NIPPON SHINYAKU
  Company Number: US-NIPPON SHINYAKU-NIP-2025-000017

PATIENT
  Age: 18 Year
  Sex: Male

DRUGS (2)
  1. VILTOLARSEN [Suspect]
     Active Substance: VILTOLARSEN
     Indication: Product used for unknown indication
     Dosage: 4850 MG, QWK
     Route: 041
  2. VILTOLARSEN [Suspect]
     Active Substance: VILTOLARSEN
     Dosage: 4850 MG, QWK
     Route: 041
     Dates: start: 20250327, end: 20250327

REACTIONS (4)
  - Illness [Unknown]
  - Pyrexia [Unknown]
  - Vomiting [Unknown]
  - Nausea [Unknown]

NARRATIVE: CASE EVENT DATE: 20250201
